FAERS Safety Report 9345269 (Version 2)
Quarter: 2013Q2

REPORT INFORMATION
  Report Type: Spontaneous
  Country: JP (occurrence: JP)
  Receive Date: 20130613
  Receipt Date: 20130626
  Transmission Date: 20140414
  Serious: Yes (Death, Life-Threatening)
  Sender: FDA-Public Use
  Company Number: JP-ROCHE-1235444

PATIENT
  Age: 76 Year
  Sex: Female

DRUGS (4)
  1. ROCEPHIN [Suspect]
     Indication: RENAL FAILURE ACUTE
     Route: 041
     Dates: start: 20130605, end: 20130605
  2. AMINOFLUID [Concomitant]
     Indication: RENAL FAILURE ACUTE
     Route: 042
     Dates: start: 20130605, end: 20130605
  3. FOY [Concomitant]
     Indication: DEHYDRATION
     Route: 042
     Dates: start: 20130605, end: 20130605
  4. LASIX [Concomitant]
     Indication: RENAL FAILURE ACUTE
     Route: 042
     Dates: start: 20130605

REACTIONS (2)
  - Renal failure acute [Fatal]
  - Anaphylactic shock [Recovering/Resolving]
